FAERS Safety Report 9692635 (Version 39)
Quarter: 2016Q4

REPORT INFORMATION
  Report Type: Report from Study
  Country: CA (occurrence: CA)
  Receive Date: 20131118
  Receipt Date: 20161031
  Transmission Date: 20170207
  Serious: Yes (Hospitalization, Other)
  Sender: FDA-Public Use
  Company Number: PHHY2011CA103164

PATIENT
  Age: 64 Year
  Sex: Female

DRUGS (8)
  1. TRIMEBUTINE [Concomitant]
     Active Substance: TRIMEBUTINE
     Indication: IRRITABLE BOWEL SYNDROME
     Dosage: 200 MG, TID
     Route: 048
  2. COVERSYL [Concomitant]
     Active Substance: PERINDOPRIL
     Dosage: 2 MG, UNK
     Route: 065
  3. SANDOSTATIN LAR DEPOT [Suspect]
     Active Substance: OCTREOTIDE ACETATE
     Indication: CARCINOID TUMOUR
     Dosage: 30 MG, QMO (EVERY 4 WEEKS)
     Route: 030
  4. SANDOSTATIN [Suspect]
     Active Substance: OCTREOTIDE ACETATE
     Indication: CARCINOID TUMOUR
     Dosage: 150 UG, TID
     Route: 058
     Dates: start: 201012, end: 2011
  5. DEXAMETHASONE. [Concomitant]
     Active Substance: DEXAMETHASONE
     Indication: PRODUCT USED FOR UNKNOWN INDICATION
     Dosage: 4 MG, Q6H
     Route: 065
  6. SANDOSTATIN LAR DEPOT [Suspect]
     Active Substance: OCTREOTIDE ACETATE
     Dosage: 20 MG
     Route: 030
     Dates: start: 20110401
  7. COREG [Concomitant]
     Active Substance: CARVEDILOL
     Indication: PRODUCT USED FOR UNKNOWN INDICATION
     Dosage: 18 MG, QD
     Route: 065
  8. COVERSYL [Concomitant]
     Active Substance: PERINDOPRIL
     Indication: PRODUCT USED FOR UNKNOWN INDICATION
     Dosage: 4 MG, UNK
     Route: 065

REACTIONS (26)
  - Bronchitis [Unknown]
  - Dyspnoea [Unknown]
  - Body temperature decreased [Unknown]
  - Hypoglycaemia [Recovering/Resolving]
  - Cough [Unknown]
  - Neoplasm progression [Unknown]
  - Nasopharyngitis [Unknown]
  - Pain [Recovering/Resolving]
  - Nervousness [Recovering/Resolving]
  - Asthenia [Unknown]
  - Heart valve incompetence [Unknown]
  - Nodule [Unknown]
  - Swelling [Not Recovered/Not Resolved]
  - Lethargy [Unknown]
  - Dizziness [Unknown]
  - Blood pressure systolic increased [Unknown]
  - Gout [Unknown]
  - Needle issue [Unknown]
  - Wrong technique in product usage process [Unknown]
  - Fatigue [Unknown]
  - Vertigo positional [Not Recovered/Not Resolved]
  - Blood glucose increased [Unknown]
  - Malaise [Unknown]
  - Tricuspid valve stenosis [Unknown]
  - Malignant neoplasm progression [Unknown]
  - Blood pressure increased [Unknown]

NARRATIVE: CASE EVENT DATE: 20131112
